FAERS Safety Report 6816572-3 (Version None)
Quarter: 2010Q3

REPORT INFORMATION
  Report Type: 
  Country: None (occurrence: None)
  Receive Date: 20100706
  Receipt Date: 20100624
  Transmission Date: 20110219
  Serious: Yes (Other)
  Sender: FDA-Public Use
  Company Number: US-ELI_LILLY_AND_COMPANY-US201005004199

PATIENT
  Sex: Female
  Weight: 181.41 kg

DRUGS (17)
  1. BYETTA [Suspect]
     Indication: TYPE 2 DIABETES MELLITUS
     Dosage: 5 UG, 2/D
     Route: 058
     Dates: start: 20080101
  2. BYETTA [Suspect]
     Dosage: 10 UG, 2/D
     Route: 058
     Dates: end: 20081101
  3. BYETTA [Suspect]
     Dosage: 5 UG, 2/D
     Route: 058
     Dates: start: 20081103
  4. ACTOS /SCH/ [Concomitant]
     Indication: TYPE 2 DIABETES MELLITUS
     Dosage: 45 MG, DAILY (1/D)
  5. GLIPIZIDE [Concomitant]
     Indication: TYPE 2 DIABETES MELLITUS
     Dosage: 5 MG, DAILY (1/D)
     Dates: end: 20080512
  6. GLIPIZIDE [Concomitant]
     Dosage: 10 MG, DAILY (1/D)
     Dates: start: 20080512
  7. ZOCOR [Concomitant]
     Indication: BLOOD CHOLESTEROL INCREASED
     Dosage: 20 MG, EACH EVENING
  8. HYDROCHLOROTHIAZIDE [Concomitant]
     Dosage: 25 MG, DAILY (1/D)
  9. LISINOPRIL [Concomitant]
     Dosage: 40 MG, DAILY (1/D)
  10. COREG [Concomitant]
     Dosage: 6.25 MG, 2/D
  11. ASPIRIN [Concomitant]
     Dosage: 81 MG, DAILY (1/D)
  12. VITAMIN B-12 [Concomitant]
     Dosage: 1000 UG, DAILY (1/D)
  13. FOLIC ACID [Concomitant]
     Dosage: 1 MG, DAILY (1/D)
  14. COMBIGAN [Concomitant]
     Dosage: UNK, 2/D
  15. VIT C [Concomitant]
  16. LUMIGAN [Concomitant]
  17. FERROUS GLUCONATE [Concomitant]
     Dosage: 325 MG, DAILY (1/D)

REACTIONS (3)
  - HYPOGLYCAEMIC UNCONSCIOUSNESS [None]
  - RETCHING [None]
  - VOMITING [None]
